FAERS Safety Report 5007060-8 (Version None)
Quarter: 2006Q1

REPORT INFORMATION
  Report Type: 
  Country: None (occurrence: None)
  Receive Date: 20060320
  Receipt Date: 20050705
  Transmission Date: 20060701
  Serious: Yes (Other)
  Sender: FDA-Public Use
  Company Number: 2005-07-0428

PATIENT
  Age: 47 Year
  Sex: Male
  Weight: 83.9154 kg

DRUGS (6)
  1. PEG-INTRON [Suspect]
     Indication: HEPATITIS C
     Dosage: 150 MCG SUBCUTANEOUS
     Route: 058
     Dates: start: 20050520
  2. REBETOL [Suspect]
     Indication: HEPATITIS C
     Dosage: 600 MG BID ORAL
     Route: 048
     Dates: start: 20050520
  3. NEXIUM [Concomitant]
  4. TOPROL-XL [Concomitant]
  5. BUSPAR BID ORAL [Concomitant]
  6. RESTORIL [Concomitant]

REACTIONS (11)
  - ALCOHOLISM [None]
  - ANGER [None]
  - ARTHRALGIA [None]
  - CONFUSIONAL STATE [None]
  - DECREASED APPETITE [None]
  - FATIGUE [None]
  - INSOMNIA [None]
  - MEMORY IMPAIRMENT [None]
  - MOOD SWINGS [None]
  - MYALGIA [None]
  - SOMNOLENCE [None]
